FAERS Safety Report 25182240 (Version 1)
Quarter: 2025Q2

REPORT INFORMATION
  Report Type: Spontaneous
  Country: US (occurrence: US)
  Receive Date: 20250410
  Receipt Date: 20250410
  Transmission Date: 20250716
  Serious: No
  Sender: KINIKSA PHARMACEUTICALS
  Company Number: US-Kiniksa Pharmaceuticals Ltd.-2024KPU000563

PATIENT
  Age: 46 Year
  Sex: Female

DRUGS (2)
  1. ARCALYST [Suspect]
     Active Substance: RILONACEPT
     Indication: Pericarditis
     Route: 058
     Dates: start: 202107
  2. ARCALYST [Suspect]
     Active Substance: RILONACEPT
     Dosage: (2ML)
     Route: 058
     Dates: start: 202107

REACTIONS (13)
  - Condition aggravated [Unknown]
  - Loss of personal independence in daily activities [Unknown]
  - Urinary tract infection [Unknown]
  - White blood cell count decreased [Unknown]
  - Monocyte count decreased [Unknown]
  - Gastroenteritis viral [Unknown]
  - Social problem [Unknown]
  - Discomfort [Unknown]
  - Chest discomfort [Unknown]
  - Troponin increased [Unknown]
  - Stress [Unknown]
  - Rhinorrhoea [Recovered/Resolved]
  - Upper respiratory tract infection [Unknown]

NARRATIVE: CASE EVENT DATE: 20240612
